FAERS Safety Report 12644553 (Version 4)
Quarter: 2016Q4

REPORT INFORMATION
  Report Type: Spontaneous
  Country: GB (occurrence: GB)
  Receive Date: 20160811
  Receipt Date: 20161019
  Transmission Date: 20170207
  Serious: Yes (Other)
  Sender: FDA-Public Use
  Company Number: PHHY2016GB107115

PATIENT
  Age: 47 Year
  Sex: Female
  Weight: 58 kg

DRUGS (8)
  1. CETIRIZINE DIHYDROCHLORIDE [Suspect]
     Active Substance: CETIRIZINE HYDROCHLORIDE
     Indication: MULTIPLE ALLERGIES
     Dosage: 10 MG
     Route: 048
     Dates: start: 20160713, end: 20160722
  2. SERTRALINE [Suspect]
     Active Substance: SERTRALINE HYDROCHLORIDE
     Dosage: 100 MG
     Route: 048
     Dates: start: 2016
  3. LORATADINE. [Concomitant]
     Active Substance: LORATADINE
     Dosage: UNK
  4. PARACETAMOL [Concomitant]
     Active Substance: ACETAMINOPHEN
     Indication: HEADACHE
     Route: 065
  5. SERTRALINE [Suspect]
     Active Substance: SERTRALINE HYDROCHLORIDE
     Indication: DEPRESSION
     Dosage: 150 MG
     Route: 048
     Dates: start: 2016, end: 2016
  6. LORATADINE. [Concomitant]
     Active Substance: LORATADINE
     Indication: PRODUCT USED FOR UNKNOWN INDICATION
     Route: 065
  7. PARACETAMOL [Concomitant]
     Active Substance: ACETAMINOPHEN
     Dosage: UNK
  8. SERTRALINE [Suspect]
     Active Substance: SERTRALINE HYDROCHLORIDE
     Dosage: 100 MG
     Route: 048
     Dates: start: 20160601, end: 2016

REACTIONS (5)
  - Abdominal discomfort [Recovered/Resolved]
  - Blood pressure systolic increased [Unknown]
  - Headache [Unknown]
  - Depression [Recovered/Resolved]
  - Inhibitory drug interaction [Unknown]

NARRATIVE: CASE EVENT DATE: 2016
